FAERS Safety Report 11002758 (Version 2)
Quarter: 2015Q2

REPORT INFORMATION
  Report Type: Spontaneous
  Country: JP (occurrence: JP)
  Receive Date: 20150408
  Receipt Date: 20150429
  Transmission Date: 20150821
  Serious: Yes (Other)
  Sender: FDA-Public Use
  Company Number: JP-ABBVIE-15P-087-1373260-00

PATIENT
  Age: 45 Year
  Sex: Female

DRUGS (4)
  1. LEUPLIN SR FOR INJECTION KIT [Suspect]
     Active Substance: LEUPROLIDE ACETATE
     Indication: BREAST CANCER FEMALE
     Route: 058
     Dates: start: 20101021
  2. BEZATOL [Concomitant]
     Active Substance: BEZAFIBRATE
     Indication: PRODUCT USED FOR UNKNOWN INDICATION
     Dates: start: 201104
  3. FARESTON [Concomitant]
     Active Substance: TOREMIFENE CITRATE
     Indication: PRODUCT USED FOR UNKNOWN INDICATION
     Dates: end: 201104
  4. LOTRIGA [Suspect]
     Active Substance: OMEGA-3-ACID ETHYL ESTERS
     Indication: HYPERTRIGLYCERIDAEMIA
     Route: 048

REACTIONS (2)
  - Hypertriglyceridaemia [Not Recovered/Not Resolved]
  - Feeling abnormal [Recovered/Resolved]

NARRATIVE: CASE EVENT DATE: 201306
